FAERS Safety Report 8386947-2 (Version None)
Quarter: 2012Q2

REPORT INFORMATION
  Report Type: 
  Country: None (occurrence: None)
  Receive Date: 20120525
  Receipt Date: 20120518
  Transmission Date: 20120825
  Serious: Yes (Death)
  Sender: FDA-Public Use
  Company Number: DE-GENZYME-MOZO-1000689

PATIENT

DRUGS (3)
  1. MOZOBIL [Suspect]
     Indication: HAEMATOPOIETIC STEM CELL MOBILISATION
     Dosage: 0.24 MG/KG, ONCE
     Route: 058
     Dates: start: 20120131, end: 20120131
  2. CHEMOTHERAPEUTICS NOS [Concomitant]
     Indication: STEM CELL TRANSPLANT
     Dosage: UNK
     Route: 065
  3. MOZOBIL [Suspect]
     Indication: MULTIPLE MYELOMA

REACTIONS (1)
  - SUDDEN CARDIAC DEATH [None]
